FAERS Safety Report 18913014 (Version 1)
Quarter: 2021Q1

REPORT INFORMATION
  Report Type: Spontaneous
  Country: US (occurrence: US)
  Receive Date: 20210219
  Receipt Date: 20210219
  Transmission Date: 20210420
  Serious: No
  Sender: FDA-Public Use
  Company Number: US-SA-2021SA055289

PATIENT
  Sex: Female

DRUGS (7)
  1. BACLOFEN. [Concomitant]
     Active Substance: BACLOFEN
  2. BETASERON [Concomitant]
     Active Substance: INTERFERON BETA-1B
  3. LOSARTAN/HCTZ [Concomitant]
     Active Substance: HYDROCHLOROTHIAZIDE\LOSARTAN
  4. REMERON RD [Concomitant]
     Active Substance: MIRTAZAPINE
  5. ADVIL 12 HOUR [Concomitant]
     Active Substance: IBUPROFEN
  6. VERELAN PM [Concomitant]
     Active Substance: VERAPAMIL HYDROCHLORIDE
  7. AUBAGIO [Suspect]
     Active Substance: TERIFLUNOMIDE
     Indication: MULTIPLE SCLEROSIS
     Route: 048
     Dates: start: 20190314

REACTIONS (3)
  - Stent placement [Unknown]
  - Depression [Unknown]
  - Asthenia [Unknown]

NARRATIVE: CASE EVENT DATE: 202012
